FAERS Safety Report 18364986 (Version 1)
Quarter: 2020Q4

REPORT INFORMATION
  Report Type: Spontaneous
  Country: US (occurrence: US)
  Receive Date: 20201009
  Receipt Date: 20201009
  Transmission Date: 20210114
  Serious: No
  Sender: FDA-Public Use
  Company Number: None

PATIENT
  Age: 62 Year
  Sex: Male

DRUGS (9)
  1. DOXYCYCLINE. [Concomitant]
     Active Substance: DOXYCYCLINE
  2. LEVOTHROXINE [Concomitant]
     Active Substance: LEVOTHYROXINE
  3. REMDESIVIR. [Suspect]
     Active Substance: REMDESIVIR
     Indication: COVID-19 PNEUMONIA
     Dates: start: 20200915, end: 20200917
  4. DEXAMETHASONE. [Concomitant]
     Active Substance: DEXAMETHASONE
  5. TOCILIZUMAB. [Concomitant]
     Active Substance: TOCILIZUMAB
  6. AZITHROMYCIN PO [Concomitant]
  7. CEFTRIAXONE. [Concomitant]
     Active Substance: CEFTRIAXONE
  8. ENOXAPARIN [Concomitant]
     Active Substance: ENOXAPARIN
  9. PANTOPRAZOLE [Concomitant]
     Active Substance: PANTOPRAZOLE

REACTIONS (4)
  - Oxygen consumption increased [None]
  - Blood urea increased [None]
  - Bradycardia [None]
  - Hypotension [None]
